FAERS Safety Report 6568924-7 (Version None)
Quarter: 2010Q1

REPORT INFORMATION
  Report Type: 
  Country: None (occurrence: None)
  Receive Date: 20100203
  Receipt Date: 20100122
  Transmission Date: 20100710
  Serious: Yes (Other)
  Sender: FDA-Public Use
  Company Number: US-JNJCH-2010001637

PATIENT
  Age: 62 Year
  Sex: Male
  Weight: 102.1 kg

DRUGS (2)
  1. ROLAIDS TAB [Suspect]
     Indication: FLATULENCE
     Dosage: TEXT:2 TABLETS
     Route: 048
     Dates: start: 20100103, end: 20100103
  2. CARVEDILOL [Concomitant]
     Indication: BLOOD PRESSURE ABNORMAL
     Dosage: TEXT:50MG TWICE DAILY
     Route: 065

REACTIONS (5)
  - DIZZINESS [None]
  - HYPERTENSION [None]
  - MALAISE [None]
  - OFF LABEL USE [None]
  - VISUAL IMPAIRMENT [None]
